FAERS Safety Report 13536822 (Version 7)
Quarter: 2018Q3

REPORT INFORMATION
  Report Type: Report from Study
  Country: DE (occurrence: DE)
  Receive Date: 20170511
  Receipt Date: 20180821
  Transmission Date: 20181010
  Serious: Yes (Death, Hospitalization, Other)
  Sender: FDA-Public Use
  Company Number: PHHY2017DE066773

PATIENT
  Age: 54 Year
  Sex: Male
  Weight: 71 kg

DRUGS (20)
  1. METOPROLOL. [Concomitant]
     Active Substance: METOPROLOL
     Indication: PRODUCT USED FOR UNKNOWN INDICATION
     Dosage: 50 MG, QD
     Route: 048
     Dates: start: 20170504, end: 20170601
  2. METAMIZOL [Concomitant]
     Active Substance: METAMIZOLE SODIUM
     Indication: PRODUCT USED FOR UNKNOWN INDICATION
     Dosage: 30 GTT, QD
     Route: 048
     Dates: start: 20170530, end: 20170601
  3. MORPHINE [Concomitant]
     Active Substance: MORPHINE
     Indication: PRODUCT USED FOR UNKNOWN INDICATION
     Dosage: 50 MG, UNK
     Route: 042
     Dates: start: 20170602
  4. LAXOBERAL [Concomitant]
     Active Substance: SODIUM PICOSULFATE
     Indication: PRODUCT USED FOR UNKNOWN INDICATION
     Dosage: 10 DRP, QD
     Route: 048
     Dates: start: 20170127, end: 20170203
  5. METAMIZOL [Concomitant]
     Active Substance: METAMIZOLE SODIUM
     Dosage: 500 MG, BID
     Route: 048
  6. BIFITERAL [Concomitant]
     Active Substance: LACTULOSE
     Indication: PRODUCT USED FOR UNKNOWN INDICATION
     Dosage: 20 ML, QD
     Route: 048
     Dates: start: 20170527, end: 20170527
  7. HYLO COMOD [Concomitant]
     Active Substance: HYALURONATE SODIUM
     Indication: PRODUCT USED FOR UNKNOWN INDICATION
     Dosage: 1 DRP, TID
     Route: 047
     Dates: start: 20170601, end: 20170601
  8. PANTHENOL [Concomitant]
     Active Substance: PANTHENOL
     Indication: PRODUCT USED FOR UNKNOWN INDICATION
     Dosage: 50 MG, TID
     Route: 048
     Dates: start: 20170527, end: 20170601
  9. IBUPROFEN. [Concomitant]
     Active Substance: IBUPROFEN
     Indication: PRODUCT USED FOR UNKNOWN INDICATION
     Dosage: 600 MG, QD
     Route: 048
     Dates: start: 20170426, end: 20170426
  10. IBUPROFEN. [Concomitant]
     Active Substance: IBUPROFEN
     Dosage: 600 MG, QD
     Route: 048
     Dates: start: 20170428, end: 20170429
  11. FRAGMIN P [Concomitant]
     Active Substance: DALTEPARIN SODIUM
     Indication: PRODUCT USED FOR UNKNOWN INDICATION
     Dosage: 5000 IU, QD
     Route: 058
     Dates: start: 20170526, end: 20170601
  12. TAFINLAR [Suspect]
     Active Substance: DABRAFENIB MESYLATE
     Indication: METASTATIC MALIGNANT MELANOMA
     Dosage: 150 MG, BID (2 X 75 MG)
     Route: 048
     Dates: start: 20170127, end: 20170525
  13. TRAMETINIB [Suspect]
     Active Substance: TRAMETINIB
     Indication: METASTATIC MALIGNANT MELANOMA
     Dosage: 2 MG, QD
     Route: 048
     Dates: start: 20170127, end: 20170525
  14. METAMIZOL [Concomitant]
     Active Substance: METAMIZOLE SODIUM
     Dosage: 500 MG, TID
     Route: 048
     Dates: start: 20170601, end: 20170601
  15. FORTECORTIN [Concomitant]
     Active Substance: DEXAMETHASONE
     Indication: PRODUCT USED FOR UNKNOWN INDICATION
     Dosage: 4 MG, TID
     Route: 048
     Dates: start: 20170602
  16. TILIDINE [Concomitant]
     Active Substance: TILIDINE
     Indication: PRODUCT USED FOR UNKNOWN INDICATION
     Dosage: 50/4 MG, BID
     Route: 048
     Dates: start: 20170124, end: 20170206
  17. IBUPROFEN. [Concomitant]
     Active Substance: IBUPROFEN
     Dosage: 600 MG, QD
     Route: 048
     Dates: start: 20170526, end: 20170531
  18. RINGERS SOLUTION [Concomitant]
     Active Substance: CALCIUM CHLORIDE\POTASSIUM CHLORIDE\SODIUM CHLORIDE
     Indication: PRODUCT USED FOR UNKNOWN INDICATION
     Dosage: 500 MG, QD
     Route: 042
     Dates: start: 20170526, end: 20170531
  19. PANTOPRAZOLE [Concomitant]
     Active Substance: PANTOPRAZOLE
     Indication: PRODUCT USED FOR UNKNOWN INDICATION
     Dosage: 40 MG, QD
     Route: 048
     Dates: start: 20170602
  20. SEVREDOL [Concomitant]
     Active Substance: MORPHINE
     Indication: PRODUCT USED FOR UNKNOWN INDICATION
     Dosage: 10 MG, QD
     Route: 048
     Dates: start: 20170531, end: 20170531

REACTIONS (25)
  - Decreased appetite [Unknown]
  - Jaundice [Recovered/Resolved]
  - Gamma-glutamyltransferase increased [Not Recovered/Not Resolved]
  - Tachycardia induced cardiomyopathy [Unknown]
  - Exercise tolerance decreased [Unknown]
  - Back pain [Recovered/Resolved]
  - Weight decreased [Unknown]
  - Constipation [Recovered/Resolved]
  - Hypertension [Unknown]
  - Sciatica [Unknown]
  - Pyrexia [Recovered/Resolved]
  - Dry mouth [Unknown]
  - Metastatic malignant melanoma [Fatal]
  - Sneezing [Not Recovered/Not Resolved]
  - Blood lactate dehydrogenase increased [Unknown]
  - Blood alkaline phosphatase abnormal [Unknown]
  - General physical health deterioration [Not Recovered/Not Resolved]
  - Vertigo [Recovered/Resolved]
  - Diarrhoea [Recovered/Resolved]
  - Epilepsy [Unknown]
  - Malignant neoplasm progression [Fatal]
  - Alopecia [Unknown]
  - Metastases to central nervous system [Fatal]
  - Tachyarrhythmia [Unknown]
  - Asthenia [Not Recovered/Not Resolved]

NARRATIVE: CASE EVENT DATE: 20170128
